FAERS Safety Report 11174114 (Version 2)
Quarter: 2015Q2

REPORT INFORMATION
  Report Type: Spontaneous
  Country: US (occurrence: US)
  Receive Date: 20150609
  Receipt Date: 20150617
  Transmission Date: 20150821
  Serious: Yes (Death, Hospitalization, Other)
  Sender: FDA-Public Use
  Company Number: US-AMGEN-USASP2015055159

PATIENT
  Age: 71 Year
  Sex: Female

DRUGS (1)
  1. PROLIA [Suspect]
     Active Substance: DENOSUMAB
     Indication: PRODUCT USED FOR UNKNOWN INDICATION
     Dosage: UNK
     Route: 065

REACTIONS (14)
  - Tachycardia paroxysmal [Unknown]
  - Immunodeficiency [Unknown]
  - Respiratory failure [Unknown]
  - Acute pulmonary oedema [Unknown]
  - Refractory anaemia with an excess of blasts [Unknown]
  - Thrombocytopenia [Unknown]
  - Bundle branch block left [Unknown]
  - Cardiac failure congestive [Fatal]
  - Klebsiella sepsis [Fatal]
  - Myelodysplastic syndrome [Unknown]
  - Urinary tract infection [Unknown]
  - Atrial fibrillation [Unknown]
  - Asthenia [Unknown]
  - Fatigue [Unknown]

NARRATIVE: CASE EVENT DATE: 20141208
